FAERS Safety Report 9934780 (Version 4)
Quarter: 2014Q2

REPORT INFORMATION
  Report Type: Spontaneous
  Country: US (occurrence: US)
  Receive Date: 20140228
  Receipt Date: 20140519
  Transmission Date: 20141212
  Serious: Yes (Life-Threatening, Hospitalization, Other)
  Sender: FDA-Public Use
  Company Number: US-GLAXOSMITHKLINE-A1061900A

PATIENT
  Sex: Female

DRUGS (6)
  1. ADVAIR [Suspect]
     Indication: PRODUCT USED FOR UNKNOWN INDICATION
     Dosage: 1PUFF TWICE PER DAY
     Route: 055
     Dates: start: 201209
  2. FUROSEMIDE [Concomitant]
  3. LEVOTHYROXINE [Concomitant]
  4. METOPROLOL TARTRATE [Concomitant]
  5. NAMENDA [Concomitant]
  6. QUETIAPINE [Concomitant]

REACTIONS (3)
  - Dyspnoea [Unknown]
  - Drug ineffective [Unknown]
  - Product quality issue [Unknown]
